FAERS Safety Report 16809057 (Version 2)
Quarter: 2019Q3

REPORT INFORMATION
  Report Type: Report from Study
  Country: US (occurrence: US)
  Receive Date: 20190916
  Receipt Date: 20190921
  Transmission Date: 20191005
  Serious: No
  Sender: FDA-Public Use
  Company Number: PHEH2019US037909

PATIENT
  Sex: Female

DRUGS (1)
  1. COSENTYX [Suspect]
     Active Substance: SECUKINUMAB
     Indication: PSORIASIS
     Dosage: 300 MG, QMO
     Route: 058
     Dates: start: 201901

REACTIONS (5)
  - Skin fissures [Unknown]
  - Burning sensation [Not Recovered/Not Resolved]
  - Therapeutic product effect decreased [Unknown]
  - Blood pressure abnormal [Unknown]
  - Insomnia [Not Recovered/Not Resolved]
